FAERS Safety Report 5355656-6 (Version None)
Quarter: 2007Q2

REPORT INFORMATION
  Report Type: 
  Country: None (occurrence: None)
  Receive Date: 20070530
  Receipt Date: 20070314
  Transmission Date: 20071010
  Serious: Yes (Hospitalization)
  Sender: FDA-Public Use
  Company Number: US200703002338

PATIENT
  Age: 26 Year
  Sex: Male

DRUGS (3)
  1. ZYPREXA [Suspect]
     Indication: PSYCHOTIC DISORDER
     Dosage: 20 MG, DAILY (1/D), ORAL
     Route: 048
     Dates: start: 20060601, end: 20070101
  2. SEROQUEL [Concomitant]
  3. ABILIFY [Concomitant]

REACTIONS (1)
  - TARDIVE DYSKINESIA [None]
